FAERS Safety Report 22169074 (Version 1)
Quarter: 2023Q2

REPORT INFORMATION
  Report Type: Spontaneous
  Country: US (occurrence: None)
  Receive Date: 20230404
  Receipt Date: 20230404
  Transmission Date: 20230721
  Serious: Yes (Other)
  Sender: FDA-Public Use
  Company Number: 2023A072451

PATIENT
  Sex: Female
  Weight: 43.3 kg

DRUGS (7)
  1. TAGRISSO [Suspect]
     Active Substance: OSIMERTINIB
     Route: 048
  2. LENVIMA [Concomitant]
     Active Substance: LENVATINIB
  3. ABIRATERONE ACETATE [Concomitant]
     Active Substance: ABIRATERONE ACETATE
  4. VITAMIN D3 [Concomitant]
     Active Substance: CHOLECALCIFEROL
  5. VITAMIN C [Concomitant]
     Active Substance: ASCORBIC ACID
  6. ASPIRIN [Concomitant]
     Active Substance: ASPIRIN
  7. THALOMID [Concomitant]
     Active Substance: THALIDOMIDE

REACTIONS (3)
  - Cervix carcinoma [Unknown]
  - Metastases to lung [Unknown]
  - Drug ineffective [Unknown]
